FAERS Safety Report 7543769-X (Version None)
Quarter: 2011Q2

REPORT INFORMATION
  Report Type: 
  Country: None (occurrence: None)
  Receive Date: 20110613
  Receipt Date: 20040720
  Transmission Date: 20111010
  Serious: Yes (Death)
  Sender: FDA-Public Use
  Company Number: PHHO2004JP09560

PATIENT
  Sex: Male
  Weight: 49 kg

DRUGS (7)
  1. URINORM [Concomitant]
     Indication: HYPERURICAEMIA
     Dosage: 50 MG DAILY DOSE
     Route: 048
     Dates: start: 20030625
  2. ADALAT CC [Concomitant]
     Indication: HYPERTENSION
     Dosage: 40 MG DAILY DOSE
     Dates: start: 20031002
  3. BASEN [Concomitant]
     Indication: DIABETES MELLITUS
     Dosage: 0.6 MG DAILY
     Dates: start: 20030630
  4. TORSEMIDE [Concomitant]
     Indication: CARDIAC FAILURE
     Dosage: 4 MG DAILY DOSE
     Dates: start: 20030625
  5. PURSENNID [Concomitant]
     Indication: CONSTIPATION
     Dosage: 12 MG DAILY
     Route: 048
     Dates: start: 20030605
  6. DIOVAN [Suspect]
     Indication: HYPERTENSION
     Dosage: 80 MG DAILY DOSE
     Route: 048
     Dates: start: 20030424
  7. ALLOPURINOL [Concomitant]
     Indication: HYPERURICAEMIA
     Dosage: 100 MG DAILY DOSE
     Route: 048
     Dates: start: 20031002

REACTIONS (3)
  - DYSPNOEA PAROXYSMAL NOCTURNAL [None]
  - OEDEMA PERIPHERAL [None]
  - CARDIAC FAILURE CONGESTIVE [None]
